FAERS Safety Report 11590579 (Version 1)
Quarter: 2015Q4

REPORT INFORMATION
  Report Type: Spontaneous
  Country: US (occurrence: US)
  Receive Date: 20151002
  Receipt Date: 20151002
  Transmission Date: 20160304
  Serious: No
  Sender: FDA-Public Use
  Company Number: US-GLAXOSMITHKLINE-US2015GSK121856

PATIENT
  Age: 52 Year
  Sex: Male

DRUGS (2)
  1. NYSTATIN ORAL LIQUID [Suspect]
     Active Substance: NYSTATIN
     Indication: CANDIDA INFECTION
  2. BREO ELLIPTA [Suspect]
     Active Substance: FLUTICASONE FUROATE\VILANTEROL TRIFENATATE
     Indication: ASTHMA

REACTIONS (3)
  - Drug ineffective [Unknown]
  - Off label use [Unknown]
  - Candida infection [Not Recovered/Not Resolved]
